FAERS Safety Report 15250357 (Version 1)
Quarter: 2018Q3

REPORT INFORMATION
  Report Type: Spontaneous
  Country: CN (occurrence: CN)
  Receive Date: 20180807
  Receipt Date: 20180807
  Transmission Date: 20181010
  Serious: Yes (Death, Other)
  Sender: FDA-Public Use
  Company Number: CN-PFIZER INC-2018311739

PATIENT
  Age: 11 Year
  Sex: Female

DRUGS (3)
  1. PREDNISONE. [Suspect]
     Active Substance: PREDNISONE
     Indication: ENCEPHALITIS AUTOIMMUNE
     Dosage: UNK
     Route: 048
  2. METHYLPREDNISOLONE. [Suspect]
     Active Substance: METHYLPREDNISOLONE
     Indication: ENCEPHALITIS AUTOIMMUNE
     Dosage: 20 MG/KG, DAILY (FOR 5 DAYS)
  3. IMMUNOGLOBULIN (IMMUNOGLOBULIN HUMAN NORMAL) [Suspect]
     Active Substance: HUMAN IMMUNOGLOBULIN G
     Indication: ENCEPHALITIS AUTOIMMUNE
     Dosage: UNK (1G/KG/DAY)
     Route: 042

REACTIONS (13)
  - Treatment failure [None]
  - Lower gastrointestinal haemorrhage [None]
  - Multiple organ dysfunction syndrome [None]
  - Aspartate aminotransferase increased [Unknown]
  - Autoimmune disorder [None]
  - Drug eruption [Recovered/Resolved]
  - Clostridium difficile colitis [None]
  - Colitis ulcerative [None]
  - Liver injury [None]
  - Subileus [None]
  - Liver function test abnormal [Unknown]
  - Alanine aminotransferase increased [Unknown]
  - Enteritis [None]

NARRATIVE: CASE EVENT DATE: 20140531
